FAERS Safety Report 9517314 (Version 2)
Quarter: 2013Q4

REPORT INFORMATION
  Report Type: Spontaneous
  Country: US (occurrence: US)
  Receive Date: 20130911
  Receipt Date: 20131126
  Transmission Date: 20140711
  Serious: No
  Sender: FDA-Public Use
  Company Number: US-ASTRAZENECA-2013SE63208

PATIENT
  Age: 39 Year
  Sex: Female
  Weight: 86.2 kg

DRUGS (5)
  1. SYMBICORT PMDI [Suspect]
     Indication: ASTHMA
     Dosage: 160/4.5 MCG, 2 PUFFS BID
     Route: 055
     Dates: start: 2013
  2. LEXAPRO [Concomitant]
     Dates: start: 2012
  3. SINGULAIR [Concomitant]
     Dates: start: 2011
  4. BABY ASPIRIN [Concomitant]
     Dosage: 2 DAILY
     Dates: start: 2008
  5. RESCUE INHALER [Concomitant]

REACTIONS (7)
  - Wheezing [Unknown]
  - Malaise [Unknown]
  - Migraine [Unknown]
  - Sleep apnoea syndrome [Unknown]
  - Dizziness [Unknown]
  - Intentional drug misuse [Unknown]
  - Drug dose omission [Unknown]
